FAERS Safety Report 8073494-0 (Version None)
Quarter: 2012Q1

REPORT INFORMATION
  Report Type: 
  Country: None (occurrence: None)
  Receive Date: 20120126
  Receipt Date: 20120126
  Transmission Date: 20120608
  Serious: Yes (Life-Threatening, Hospitalization, Other)
  Sender: FDA-Public Use
  Company Number: None

PATIENT
  Age: 31 Year
  Sex: Female
  Weight: 60.327 kg

DRUGS (1)
  1. MIRENA [Suspect]
     Indication: CONTRACEPTION
     Dates: start: 20091009, end: 20120125

REACTIONS (5)
  - PELVIC INFLAMMATORY DISEASE [None]
  - SEPSIS [None]
  - RENAL CYST [None]
  - REPRODUCTIVE COMPLICATION ASSOCIATED WITH DEVICE [None]
  - DEVICE RELATED INFECTION [None]
